FAERS Safety Report 7961355-4 (Version None)
Quarter: 2011Q4

REPORT INFORMATION
  Report Type: 
  Country: None (occurrence: None)
  Receive Date: 20111202
  Receipt Date: 20111117
  Transmission Date: 20120403
  Serious: Yes (Hospitalization, Other)
  Sender: FDA-Public Use
  Company Number: GGEL20111101505

PATIENT
  Age: 42 Year
  Sex: Male
  Weight: 77.11 kg

DRUGS (4)
  1. TRIMETHOPRIM [Suspect]
     Indication: PROPHYLAXIS
     Dates: start: 20111106
  2. AZITHROMYCIN [Suspect]
     Indication: PROPHYLAXIS
     Dosage: 1200 MG TABLETS ONCE A WEEK, ORAL, 2* 600MG TABLETS ONCE A WEEK, ORAL
     Route: 048
     Dates: start: 20111106
  3. FLUCONAZOLE [Suspect]
     Indication: PROPHYLAXIS
     Dosage: ORAL
     Route: 048
     Dates: start: 20111106
  4. DAPSONE [Suspect]
     Indication: PROPHYLAXIS
     Dates: start: 20111106

REACTIONS (3)
  - ANAPHYLACTIC REACTION [None]
  - SKIN ULCER HAEMORRHAGE [None]
  - RECTAL HAEMORRHAGE [None]
